FAERS Safety Report 13080150 (Version 2)
Quarter: 2017Q1

REPORT INFORMATION
  Report Type: Spontaneous
  Country: JP (occurrence: JP)
  Receive Date: 20170103
  Receipt Date: 20170112
  Transmission Date: 20170428
  Serious: Yes (Hospitalization, Other)
  Sender: FDA-Public Use
  Company Number: JP-VIIV HEALTHCARE LIMITED-JP2016JPN191059

PATIENT
  Age: 67 Year

DRUGS (8)
  1. MENESIT [Concomitant]
     Active Substance: CARBIDOPA\LEVODOPA
  2. DOPS (JAPAN) [Concomitant]
  3. FLORINEF ACETATE [Concomitant]
     Active Substance: FLUDROCORTISONE ACETATE
  4. TIVICAY [Suspect]
     Active Substance: DOLUTEGRAVIR SODIUM
     Indication: HIV INFECTION
     Dosage: 50 MG, QD
     Route: 048
  5. EDURANT [Concomitant]
     Active Substance: RILPIVIRINE HYDROCHLORIDE
     Indication: HIV INFECTION
     Dosage: UNK
  6. MAGNESIUM OXIDE. [Concomitant]
     Active Substance: MAGNESIUM OXIDE
  7. CEREDIST [Concomitant]
     Active Substance: TALTIRELIN
  8. TIVICAY [Suspect]
     Active Substance: DOLUTEGRAVIR SODIUM
     Dosage: 50 MG, QD
     Route: 050

REACTIONS (3)
  - Pneumonia aspiration [Recovered/Resolved]
  - Incorrect route of drug administration [Unknown]
  - Wrong technique in product usage process [Unknown]
